FAERS Safety Report 13359233 (Version 1)
Quarter: 2017Q1

REPORT INFORMATION
  Report Type: Spontaneous
  Country: CH (occurrence: CH)
  Receive Date: 20170322
  Receipt Date: 20170322
  Transmission Date: 20170429
  Serious: Yes (Life-Threatening, Other)
  Sender: FDA-Public Use
  Company Number: CH-ASTRAZENECA-2017SE27487

PATIENT
  Age: 31256 Day
  Sex: Female

DRUGS (17)
  1. ESCITALOPRAM [Suspect]
     Active Substance: ESCITALOPRAM OXALATE
     Route: 048
  2. ADRENALINE [Concomitant]
     Active Substance: EPINEPHRINE
     Dosage: 0.5 MG
     Route: 040
     Dates: start: 20170214, end: 20170214
  3. METOPROLOL SUCCINATE. [Suspect]
     Active Substance: METOPROLOL SUCCINATE
     Route: 048
  4. ZOLDORM [Concomitant]
     Active Substance: ZOLPIDEM TARTRATE
  5. CARBOSTESIN [Suspect]
     Active Substance: BUPIVACAINE HYDROCHLORIDE
     Dosage: 7.5 MG, THEN 2.5 MG AND 5 MG
     Route: 037
     Dates: start: 20170214, end: 20170214
  6. ATACAND [Suspect]
     Active Substance: CANDESARTAN CILEXETIL
     Route: 048
     Dates: end: 20170214
  7. SINTROM [Concomitant]
     Active Substance: ACENOCOUMAROL
     Dates: end: 20170210
  8. NEXIUM [Concomitant]
     Active Substance: ESOMEPRAZOLE MAGNESIUM
     Route: 042
     Dates: start: 20170214
  9. CHIROCAINE [Concomitant]
     Active Substance: LEVOBUPIVACAINE HYDROCHLORIDE
     Dosage: 20.0ML UNKNOWN
     Route: 014
     Dates: start: 20170214, end: 20170214
  10. PHENYLEPHRIN [Suspect]
     Active Substance: PHENYLEPHRINE HYDROCHLORIDE
     Dosage: 525 UG, DOSING UNKNOWN
     Route: 041
     Dates: start: 20170214, end: 20170214
  11. COLECALCIFEROL [Concomitant]
     Active Substance: CHOLECALCIFEROL
     Dosage: 6 DROPS ONCE DAILY
  12. OMEPRAZOL [Concomitant]
     Active Substance: OMEPRAZOLE
  13. LEXOTANIL [Concomitant]
     Active Substance: BROMAZEPAM
  14. DEXMEDETOMIDINE HYDROCHLORIDE. [Suspect]
     Active Substance: DEXMEDETOMIDINE HYDROCHLORIDE
     Dosage: 38.1 UG, DOSING UNKNOWN
     Route: 041
     Dates: start: 20170214, end: 20170214
  15. ALDACTONE [Concomitant]
     Active Substance: SPIRONOLACTONE
  16. ZINACEF [Concomitant]
     Active Substance: CEFUROXIME SODIUM
     Dosage: 1.5 G
     Route: 042
     Dates: start: 20170214, end: 20170214
  17. KETOROLAC [Concomitant]
     Active Substance: KETOROLAC\KETOROLAC TROMETHAMINE
     Dosage: 30.0MG UNKNOWN
     Route: 014
     Dates: start: 20170214, end: 20170214

REACTIONS (3)
  - Haemoglobin decreased [Unknown]
  - Bradycardia [Recovered/Resolved]
  - Loss of consciousness [Recovered/Resolved]

NARRATIVE: CASE EVENT DATE: 20170214
